FAERS Safety Report 6282381-X (Version None)
Quarter: 2009Q3

REPORT INFORMATION
  Report Type: 
  Country: None (occurrence: None)
  Receive Date: 20090724
  Receipt Date: 20090715
  Transmission Date: 20100115
  Serious: Yes (Death, Hospitalization)
  Sender: FDA-Public Use
  Company Number: US-AVENTIS-200914800US

PATIENT
  Sex: Male
  Weight: 87 kg

DRUGS (25)
  1. TAXOTERE [Suspect]
     Indication: NON-SMALL CELL LUNG CANCER
     Route: 042
     Dates: start: 20090509, end: 20090509
  2. RADIATION THERAPY [Suspect]
     Dates: start: 20090319
  3. LISINOPRIL AND HYDROCHLOROTHIAZIDE [Concomitant]
     Indication: HYPERTENSION
     Dosage: DOSE: 20/25
     Dates: start: 20080620
  4. VERAPAMIL [Concomitant]
     Indication: HYPERTENSION
     Route: 048
  5. PREVACID [Concomitant]
     Route: 048
  6. COUMADIN [Concomitant]
     Indication: PULMONARY EMBOLISM
     Dosage: DOSE: 2.5-5.0
  7. ASPIRIN [Concomitant]
     Route: 048
     Dates: start: 20080620
  8. LORAZEPAM [Concomitant]
     Dosage: DOSE: UNK
  9. VICODIN [Concomitant]
     Dosage: DOSE: UNK
  10. TYLENOL [Concomitant]
  11. BENADRYL [Concomitant]
     Dosage: DOSE: UINK
     Dates: start: 20080808
  12. UNKNOWN DRUG [Concomitant]
     Dosage: DOSE: UNK
  13. ACETAMINOPHEN W/ CODEINE [Concomitant]
     Dosage: DOSE: 120-12 MG/5ML
     Route: 048
     Dates: start: 20090501
  14. ADVAIR HFA [Concomitant]
     Dosage: DOSE: 50 MCG - ONE PUFF
     Route: 055
     Dates: start: 20081107
  15. ATIVAN [Concomitant]
     Dosage: DOSE: 1 MG EVERY 4 HOUR
     Route: 048
     Dates: start: 20090312
  16. CHLORPROMAZINE [Concomitant]
     Indication: HICCUPS
     Route: 048
     Dates: start: 20090327
  17. COMPAZINE [Concomitant]
     Indication: NAUSEA
     Dosage: DOSE: UNK
     Route: 048
     Dates: start: 20090312
  18. DEXAMETHASONE [Concomitant]
     Route: 048
     Dates: start: 20090515
  19. IMODIUM A-D [Concomitant]
     Dates: start: 20080808
  20. MIRALAX [Concomitant]
     Dosage: DOSE: UNK
     Route: 048
     Dates: start: 20090327
  21. OS-CAL                             /00188401/ [Concomitant]
     Dosage: DOSE: 2 TABLET
     Route: 048
     Dates: start: 20080905
  22. PROAIR HFA [Concomitant]
     Dosage: DOSE: 1 PUFF
     Route: 055
     Dates: start: 20081024
  23. VIT B COMPLEX [Concomitant]
     Dosage: DOSE: ONE TABLET
     Route: 048
     Dates: start: 20081024
  24. VITAMIN B6 [Concomitant]
     Dosage: DOSE: ONE TABLET
     Route: 048
     Dates: start: 20080327
  25. VITAMIN D-3 [Concomitant]
     Dosage: DOSE: 400 UNIT
     Route: 048
     Dates: start: 20090108

REACTIONS (19)
  - ABDOMINAL PAIN [None]
  - ANAEMIA [None]
  - ATRIAL FIBRILLATION [None]
  - BRADYCARDIA [None]
  - CHEST PAIN [None]
  - DYSPNOEA [None]
  - GASTROOESOPHAGEAL REFLUX DISEASE [None]
  - HYPOXIA [None]
  - ILEUS PARALYTIC [None]
  - INTESTINAL ISCHAEMIA [None]
  - OBSTRUCTIVE AIRWAYS DISORDER [None]
  - PALPITATIONS [None]
  - PLEURAL EFFUSION [None]
  - PULMONARY FIBROSIS [None]
  - RADIATION PNEUMONITIS [None]
  - RENAL FAILURE ACUTE [None]
  - RESPIRATORY FAILURE [None]
  - SEPSIS [None]
  - SEPTIC SHOCK [None]
